FAERS Safety Report 19645817 (Version 1)
Quarter: 2021Q3

REPORT INFORMATION
  Report Type: Spontaneous
  Country: TW (occurrence: TW)
  Receive Date: 20210802
  Receipt Date: 20210802
  Transmission Date: 20211014
  Serious: Yes (Other)
  Sender: FDA-Public Use
  Company Number: TW-CELGENEUS-CHN-20210704411

PATIENT
  Age: 71 Year
  Sex: Male

DRUGS (4)
  1. ABRAXANE [Suspect]
     Active Substance: PACLITAXEL
     Indication: MIXED HEPATOCELLULAR CHOLANGIOCARCINOMA
     Route: 041
     Dates: start: 201909, end: 20191220
  2. CISPLATIN. [Suspect]
     Active Substance: CISPLATIN
     Indication: MIXED HEPATOCELLULAR CHOLANGIOCARCINOMA
     Route: 065
     Dates: start: 201909, end: 20191220
  3. GEMCITABINE. [Suspect]
     Active Substance: GEMCITABINE
     Indication: MIXED HEPATOCELLULAR CHOLANGIOCARCINOMA
     Route: 065
     Dates: start: 201909, end: 20191220
  4. ABRAXANE [Suspect]
     Active Substance: PACLITAXEL
     Indication: OFF LABEL USE

REACTIONS (7)
  - Neutropenia [Unknown]
  - Drug intolerance [Unknown]
  - Neuropathy peripheral [Unknown]
  - Fatigue [Unknown]
  - Nausea [Unknown]
  - Toxicity to various agents [Unknown]
  - Vomiting [Unknown]

NARRATIVE: CASE EVENT DATE: 2019
